FAERS Safety Report 23271525 (Version 2)
Quarter: 2023Q4

REPORT INFORMATION
  Report Type: Spontaneous
  Country: AU (occurrence: AU)
  Receive Date: 20231207
  Receipt Date: 20231214
  Transmission Date: 20240110
  Serious: Yes (Other)
  Sender: FDA-Public Use
  Company Number: AU-PFIZER INC-202300376358

PATIENT
  Age: 35 Year
  Sex: Female

DRUGS (2)
  1. SYNAREL [Suspect]
     Active Substance: NAFARELIN ACETATE
     Dosage: 1 SPRAY TWICE A DAY
     Dates: start: 20231108, end: 20231109
  2. LEVLEN [Concomitant]
     Active Substance: ETHINYL ESTRADIOL\LEVONORGESTREL
     Indication: Oral contraception
     Dosage: 1 TABLET, DAILY
     Route: 048
     Dates: start: 20231026, end: 20231109

REACTIONS (11)
  - Ocular hyperaemia [Recovering/Resolving]
  - Swelling [Recovered/Resolved]
  - Nausea [Recovered/Resolved]
  - Vomiting [Recovered/Resolved]
  - Nasal congestion [Recovered/Resolved]
  - Eye oedema [Recovering/Resolving]
  - Eye swelling [Recovering/Resolving]
  - Swelling face [Recovered/Resolved]
  - Eye haemorrhage [Recovering/Resolving]
  - Dysphagia [Recovered/Resolved]
  - Capillary disorder [Not Recovered/Not Resolved]

NARRATIVE: CASE EVENT DATE: 20231109
